FAERS Safety Report 8276034-6 (Version None)
Quarter: 2012Q2

REPORT INFORMATION
  Report Type: 
  Country: None (occurrence: None)
  Receive Date: 20120412
  Receipt Date: 20120328
  Transmission Date: 20120825
  Serious: Yes (Other)
  Sender: FDA-Public Use
  Company Number: US-JNJFOC-20120305562

PATIENT
  Sex: Female
  Weight: 61.24 kg

DRUGS (1)
  1. ULTRAM [Suspect]
     Indication: PAIN
     Route: 048
     Dates: start: 20060101, end: 20060101

REACTIONS (2)
  - SPINAL COMPRESSION FRACTURE [None]
  - FALL [None]
